FAERS Safety Report 20919685 (Version 1)
Quarter: 2022Q2

REPORT INFORMATION
  Report Type: Spontaneous
  Country: US (occurrence: US)
  Receive Date: 20220606
  Receipt Date: 20220606
  Transmission Date: 20220720
  Serious: No
  Sender: FDA-Public Use
  Company Number: US-BRISTOL-MYERS SQUIBB COMPANY-2022-038238

PATIENT
  Age: 90 Year
  Sex: Female
  Weight: 61.23 kg

DRUGS (1)
  1. POMALYST [Suspect]
     Active Substance: POMALIDOMIDE
     Indication: Plasma cell myeloma
     Dosage: 3WKON/1WKOFF
     Route: 048
     Dates: start: 2020, end: 20220501

REACTIONS (3)
  - Pyrexia [Not Recovered/Not Resolved]
  - Infection [Not Recovered/Not Resolved]
  - White blood cell count decreased [Not Recovered/Not Resolved]

NARRATIVE: CASE EVENT DATE: 20220508
